FAERS Safety Report 11515080 (Version 2)
Quarter: 2015Q3

REPORT INFORMATION
  Report Type: Spontaneous
  Country: TR (occurrence: TR)
  Receive Date: 20150916
  Receipt Date: 20150916
  Transmission Date: 20151125
  Serious: Yes (Other)
  Sender: FDA-Public Use
  Company Number: TR-BAYER-2015-423175

PATIENT
  Age: 55 Year
  Sex: Male

DRUGS (3)
  1. CLOPIDOGREL [Concomitant]
     Active Substance: CLOPIDOGREL BISULFATE
  2. ASPIRIN. [Suspect]
     Active Substance: ASPIRIN
     Indication: CARDIAC VENTRICULAR THROMBOSIS
  3. WARFARIN [Interacting]
     Active Substance: WARFARIN
     Indication: CARDIAC VENTRICULAR THROMBOSIS

REACTIONS (4)
  - Labelled drug-drug interaction medication error [None]
  - Embolism [None]
  - Treatment noncompliance [Unknown]
  - Gastric haemorrhage [Recovered/Resolved]
